FAERS Safety Report 17836153 (Version 1)
Quarter: 2020Q2

REPORT INFORMATION
  Report Type: Spontaneous
  Country: US (occurrence: US)
  Receive Date: 20200528
  Receipt Date: 20200528
  Transmission Date: 20200714
  Serious: Yes (Hospitalization, Other)
  Sender: FDA-Public Use
  Company Number: US-ALLERGAN-2021303US

PATIENT
  Sex: Female

DRUGS (1)
  1. ATROPINE UNK [Suspect]
     Active Substance: ATROPINE SULFATE
     Indication: PRODUCT USED FOR UNKNOWN INDICATION
     Dosage: 4 ML, SINGLE

REACTIONS (6)
  - Tachycardia [Recovering/Resolving]
  - Mucosal dryness [Recovering/Resolving]
  - Mydriasis [Recovering/Resolving]
  - Gastrointestinal sounds abnormal [Recovering/Resolving]
  - Toxicity to various agents [Recovering/Resolving]
  - Accidental overdose [Unknown]
